FAERS Safety Report 6741568-X (Version None)
Quarter: 2010Q2

REPORT INFORMATION
  Report Type: 
  Country: None (occurrence: None)
  Receive Date: 20100526
  Receipt Date: 20100517
  Transmission Date: 20101027
  Serious: Yes (Hospitalization)
  Sender: FDA-Public Use
  Company Number: DE-ABBOTT-10P-062-0645796-00

PATIENT
  Sex: Female
  Weight: 51 kg

DRUGS (1)
  1. HUMIRA [Suspect]
     Indication: CROHN'S DISEASE
     Route: 058
     Dates: start: 20100201, end: 20100501

REACTIONS (2)
  - EPILEPSY [None]
  - SYNCOPE [None]
